FAERS Safety Report 5786697-2 (Version None)
Quarter: 2008Q2

REPORT INFORMATION
  Report Type: 
  Country: None (occurrence: None)
  Receive Date: 20080618
  Receipt Date: 20080609
  Transmission Date: 20081010
  Serious: Yes (Hospitalization)
  Sender: FDA-Public Use
  Company Number: E3810-01935-SPO-FR

PATIENT
  Age: 20 Year
  Sex: Female

DRUGS (3)
  1. RABEPRAZOLE SODIUM [Suspect]
     Dosage: ORAL
     Route: 048
     Dates: start: 20080509, end: 20080514
  2. CHLOROQUINE PHOSPHATE [Suspect]
     Indication: MALARIA
     Dosage: ORAL
     Route: 048
     Dates: start: 20080509, end: 20080514
  3. CEFPODOXIME PROXETIL [Suspect]
     Dosage: ORAL
     Route: 048
     Dates: start: 20080509, end: 20080514

REACTIONS (1)
  - THROMBOCYTOPENIC PURPURA [None]
